FAERS Safety Report 11806421 (Version 3)
Quarter: 2016Q1

REPORT INFORMATION
  Report Type: Spontaneous
  Country: IE (occurrence: IE)
  Receive Date: 20151207
  Receipt Date: 20160202
  Transmission Date: 20160525
  Serious: Yes (Hospitalization)
  Sender: FDA-Public Use
  Company Number: IE-JNJFOC-20151202654

PATIENT
  Age: 44 Year
  Sex: Male
  Weight: 72 kg

DRUGS (3)
  1. INVOKANA [Suspect]
     Active Substance: CANAGLIFLOZIN
     Indication: LATENT AUTOIMMUNE DIABETES IN ADULTS
     Route: 048
     Dates: start: 20151027, end: 20151128
  2. JANUMET [Concomitant]
     Active Substance: METFORMIN HYDROCHLORIDE\SITAGLIPTIN PHOSPHATE
     Indication: LATENT AUTOIMMUNE DIABETES IN ADULTS
     Route: 065
     Dates: end: 20151128
  3. LEVEMIR [Concomitant]
     Active Substance: INSULIN DETEMIR
     Indication: LATENT AUTOIMMUNE DIABETES IN ADULTS
     Dosage: DOSE: 16 UNITS
     Route: 065

REACTIONS (3)
  - Off label use [Unknown]
  - Product use issue [Unknown]
  - Diabetic ketoacidosis [Recovered/Resolved]

NARRATIVE: CASE EVENT DATE: 20151027
